FAERS Safety Report 8934915 (Version 3)
Quarter: 2013Q2

REPORT INFORMATION
  Report Type: Spontaneous
  Country: US (occurrence: US)
  Receive Date: 20121129
  Receipt Date: 20130517
  Transmission Date: 20140414
  Serious: Yes (Hospitalization, Other)
  Sender: FDA-Public Use
  Company Number: US-009507513-1211USA010853

PATIENT
  Sex: Female
  Weight: 102.4 kg

DRUGS (4)
  1. NUVARING [Suspect]
     Indication: MENOPAUSAL SYMPTOMS
     Dosage: UNK
     Route: 067
     Dates: start: 200704, end: 200706
  2. PREVACID [Concomitant]
     Indication: GASTROOESOPHAGEAL REFLUX DISEASE
     Dosage: UNK QD
     Dates: start: 2006, end: 2012
  3. LIPITOR [Concomitant]
     Indication: HYPERLIPIDAEMIA
     Dosage: UNK, QD
     Dates: start: 2006, end: 2012
  4. SYNTHROID [Concomitant]
     Indication: HYPOTHYROIDISM
     Dosage: UNK
     Dates: start: 1990

REACTIONS (11)
  - Parathyroidectomy [Unknown]
  - Deep vein thrombosis [Unknown]
  - Parathyroid disorder [Unknown]
  - Off label use [Unknown]
  - Dyspnoea [Recovered/Resolved]
  - Chest pain [Recovered/Resolved]
  - Local swelling [Unknown]
  - Lymphadenopathy [Unknown]
  - Fibrocystic breast disease [Unknown]
  - Uterine leiomyoma [Unknown]
  - Ovarian cyst [Unknown]
